FAERS Safety Report 7470722-7 (Version None)
Quarter: 2011Q2

REPORT INFORMATION
  Report Type: 
  Country: None (occurrence: None)
  Receive Date: 20110506
  Receipt Date: 20110506
  Transmission Date: 20111010
  Serious: Yes (Hospitalization)
  Sender: FDA-Public Use
  Company Number: None

PATIENT
  Age: 43 Year
  Sex: Female
  Weight: 55.7924 kg

DRUGS (1)
  1. CARBATROL [Suspect]
     Dosage: 200MG BID PO
     Route: 048
     Dates: start: 20110223, end: 20110307

REACTIONS (1)
  - STEVENS-JOHNSON SYNDROME [None]
